FAERS Safety Report 7122715-7 (Version None)
Quarter: 2010Q4

REPORT INFORMATION
  Report Type: 
  Country: None (occurrence: None)
  Receive Date: 20101124
  Receipt Date: 20101115
  Transmission Date: 20110411
  Serious: No
  Sender: FDA-Public Use
  Company Number: US-PFIZER INC-2010151615

PATIENT
  Sex: Female
  Weight: 65.7 kg

DRUGS (5)
  1. EFFEXOR XR [Suspect]
     Indication: FIBROMYALGIA
     Dosage: 37.5 MG, 1X/DAY
     Route: 048
     Dates: start: 20091201
  2. PREMARIN [Concomitant]
     Dosage: UNK
  3. VICODIN [Concomitant]
     Indication: HEADACHE
     Dosage: UNK
  4. MAXALT [Concomitant]
     Indication: MIGRAINE
     Dosage: UNK
  5. SOMA [Concomitant]
     Indication: MUSCLE SPASMS
     Dosage: UNK

REACTIONS (4)
  - DEPRESSION [None]
  - HOT FLUSH [None]
  - HYPERHIDROSIS [None]
  - OFF LABEL USE [None]
